FAERS Safety Report 12968880 (Version 1)
Quarter: 2016Q4

REPORT INFORMATION
  Report Type: Spontaneous
  Country: US (occurrence: US)
  Receive Date: 20161123
  Receipt Date: 20161123
  Transmission Date: 20170207
  Serious: No
  Sender: FDA-Public Use
  Company Number: US-PFIZER INC-2016544608

PATIENT
  Age: 48 Year
  Sex: Male
  Weight: 95 kg

DRUGS (2)
  1. VIAGRA [Suspect]
     Active Substance: SILDENAFIL CITRATE
     Indication: ERECTILE DYSFUNCTION
     Dosage: 20 OR 25MG, TABLET, ORALLY, WHEN NEEDED, AS NEEDED
     Route: 048
     Dates: start: 20160501
  2. VIAGRA [Suspect]
     Active Substance: SILDENAFIL CITRATE
     Dosage: 50 MG, AS NEEDED; TABLET, ORALLY, WHEN NEEDED
     Route: 048
     Dates: start: 20160515

REACTIONS (4)
  - Penile pain [Not Recovered/Not Resolved]
  - Penile swelling [Unknown]
  - Ejaculation disorder [Unknown]
  - Drug ineffective [Unknown]

NARRATIVE: CASE EVENT DATE: 201605
